FAERS Safety Report 8364105-5 (Version None)
Quarter: 2012Q2

REPORT INFORMATION
  Report Type: 
  Country: None (occurrence: None)
  Receive Date: 20120516
  Receipt Date: 20120509
  Transmission Date: 20120825
  Serious: Yes (Hospitalization, Other)
  Sender: FDA-Public Use
  Company Number: US-PFIZER INC-2011259421

PATIENT
  Sex: Female

DRUGS (4)
  1. TYLENOL (CAPLET) [Concomitant]
     Indication: PYREXIA
     Dosage: 200 MG, 1X/DAY
     Route: 048
     Dates: start: 20110707
  2. ZITHROMAX [Suspect]
     Indication: PNEUMONIA
     Dosage: UNK
     Route: 048
     Dates: start: 20110711, end: 20110719
  3. AZITHROMYCIN [Suspect]
     Indication: PNEUMONIA
     Dosage: UNK
     Route: 048
     Dates: start: 20110711, end: 20110701
  4. AUGMENTIN [Concomitant]
     Indication: PNEUMONIA
     Dosage: 250-62.5MG/5ML, TWICE DAILY
     Route: 048
     Dates: start: 20110708, end: 20110713

REACTIONS (3)
  - TOOTH LOSS [None]
  - TOXIC EPIDERMAL NECROLYSIS [None]
  - DRUG RASH WITH EOSINOPHILIA AND SYSTEMIC SYMPTOMS [None]
